FAERS Safety Report 17983872 (Version 1)
Quarter: 2020Q3

REPORT INFORMATION
  Report Type: Spontaneous
  Country: US (occurrence: US)
  Receive Date: 20200705
  Receipt Date: 20200705
  Transmission Date: 20201103
  Serious: Yes (Life-Threatening, Hospitalization)
  Sender: FDA-Public Use
  Company Number: None

PATIENT
  Age: 89 Year
  Sex: Female
  Weight: 54 kg

DRUGS (1)
  1. IMBRUVICA [Suspect]
     Active Substance: IBRUTINIB
     Indication: CHRONIC LYMPHOCYTIC LEUKAEMIA
     Dosage: ?          QUANTITY:28 TABLET(S);?
     Route: 048
     Dates: start: 20200227, end: 20200520

REACTIONS (4)
  - Cardiac arrest [None]
  - Head injury [None]
  - Brain injury [None]
  - Loss of consciousness [None]

NARRATIVE: CASE EVENT DATE: 20200520
